FAERS Safety Report 5401628-2 (Version None)
Quarter: 2007Q3

REPORT INFORMATION
  Report Type: 
  Country: None (occurrence: None)
  Receive Date: 20070731
  Receipt Date: 20070721
  Transmission Date: 20080115
  Serious: Yes (Death, Hospitalization)
  Sender: FDA-Public Use
  Company Number: IE-PFIZER INC-2006018248

PATIENT
  Sex: Female

DRUGS (10)
  1. LIPITOR [Suspect]
     Indication: CEREBROVASCULAR DISORDER
     Route: 048
     Dates: start: 20051216, end: 20060115
  2. LIPITOR [Suspect]
     Indication: BLOOD CHOLESTEROL INCREASED
  3. PLAVIX [Concomitant]
     Route: 048
     Dates: start: 20051201, end: 20060113
  4. PANTOPRAZOLE SODIUM [Concomitant]
     Route: 048
     Dates: start: 20051101, end: 20060113
  5. CENTYL K [Concomitant]
     Route: 048
     Dates: start: 20060109, end: 20060113
  6. MESULID [Concomitant]
     Route: 065
  7. ATENOGEN [Concomitant]
     Route: 065
  8. ISTIN [Concomitant]
     Route: 065
  9. OROVITE [Concomitant]
  10. THIAMINE [Concomitant]

REACTIONS (5)
  - BACK PAIN [None]
  - MULTI-ORGAN FAILURE [None]
  - PULMONARY HAEMORRHAGE [None]
  - RENAL FAILURE ACUTE [None]
  - RHABDOMYOLYSIS [None]
